FAERS Safety Report 10934691 (Version 1)
Quarter: 2015Q1

REPORT INFORMATION
  Report Type: Spontaneous
  Country: US (occurrence: US)
  Receive Date: 20150320
  Receipt Date: 20150320
  Transmission Date: 20150721
  Serious: Yes (Hospitalization)
  Sender: FDA-Public Use
  Company Number: US-SA-2015SA033063

PATIENT
  Age: 3 Year
  Sex: Male

DRUGS (6)
  1. BENADRYL [Concomitant]
     Active Substance: DIPHENHYDRAMINE HYDROCHLORIDE
     Indication: PREMEDICATION
  2. LUMIZYME [Suspect]
     Active Substance: ALGLUCOSIDASE ALFA
     Indication: GLYCOGEN STORAGE DISEASE TYPE II
     Route: 042
     Dates: start: 20110602
  3. FLECAINIDE [Concomitant]
     Active Substance: FLECAINIDE
  4. PROPRANOLOL [Concomitant]
     Active Substance: PROPRANOLOL\PROPRANOLOL HYDROCHLORIDE
  5. DOCOSAHEXAENOIC ACID [Concomitant]
  6. TYLENOL [Concomitant]
     Active Substance: ACETAMINOPHEN
     Indication: PREMEDICATION

REACTIONS (10)
  - Hypoxia [Unknown]
  - Vomiting [Unknown]
  - Fatigue [Unknown]
  - Rhinorrhoea [Unknown]
  - Dyspnoea [Unknown]
  - Use of accessory respiratory muscles [Unknown]
  - Constipation [Unknown]
  - Cough [Unknown]
  - Seasonal allergy [Unknown]
  - Respiratory distress [Unknown]

NARRATIVE: CASE EVENT DATE: 20150311
